FAERS Safety Report 6751395-5 (Version None)
Quarter: 2010Q2

REPORT INFORMATION
  Report Type: 
  Country: None (occurrence: None)
  Receive Date: 20100528
  Receipt Date: 20100519
  Transmission Date: 20101027
  Serious: Yes (Other)
  Sender: FDA-Public Use
  Company Number: FR-1181994

PATIENT
  Age: 84 Year
  Sex: Male

DRUGS (3)
  1. AZOPT [Suspect]
     Dosage: OPHTHALMIC
     Route: 047
  2. XALATAN [Concomitant]
  3. CARPINOL (PILOCARPINE NITRATE) [Concomitant]

REACTIONS (3)
  - AMNESIA [None]
  - MEMORY IMPAIRMENT [None]
  - VERTIGO [None]
